FAERS Safety Report 5890058-5 (Version None)
Quarter: 2008Q3

REPORT INFORMATION
  Report Type: 
  Country: None (occurrence: None)
  Receive Date: 20080919
  Receipt Date: 20080709
  Transmission Date: 20090109
  Serious: Yes (Hospitalization)
  Sender: FDA-Public Use
  Company Number: BR-PFIZER INC-2008057565

PATIENT
  Sex: Female

DRUGS (1)
  1. LIPITOR [Suspect]
     Dosage: TEXT:20MG (HALF OF 40 MG TABLET DAILY)
     Route: 048
     Dates: start: 20080620

REACTIONS (1)
  - CEREBROVASCULAR ACCIDENT [None]
